FAERS Safety Report 11717370 (Version 5)
Quarter: 2017Q1

REPORT INFORMATION
  Report Type: Spontaneous
  Country: CA (occurrence: CA)
  Receive Date: 20151110
  Receipt Date: 20170227
  Transmission Date: 20170428
  Serious: Yes (Other)
  Sender: FDA-Public Use
  Company Number: CA-ROCHE-1657447

PATIENT
  Age: 40 Year
  Sex: Female

DRUGS (4)
  1. XOLAIR [Suspect]
     Active Substance: OMALIZUMAB
     Dosage: UNK
     Route: 058
     Dates: start: 20170130
  2. XOLAIR [Suspect]
     Active Substance: OMALIZUMAB
     Indication: ASTHMA
     Dosage: 375 MG, BIW
     Route: 058
     Dates: start: 20131020
  3. XOLAIR [Suspect]
     Active Substance: OMALIZUMAB
     Dosage: UNK
     Route: 058
     Dates: start: 20131211
  4. XOLAIR [Suspect]
     Active Substance: OMALIZUMAB
     Dosage: 375 MG, BIW
     Route: 058
     Dates: start: 20131120

REACTIONS (10)
  - Aphonia [Unknown]
  - Sensitivity to weather change [Unknown]
  - Dyspnoea [Unknown]
  - Anxiety [Unknown]
  - Bronchitis [Unknown]
  - Dizziness [Unknown]
  - Stress [Unknown]
  - Cellulitis [Unknown]
  - Bronchospasm [Unknown]
  - Nausea [Unknown]

NARRATIVE: CASE EVENT DATE: 20131211
